FAERS Safety Report 4999845-9 (Version None)
Quarter: 2006Q2

REPORT INFORMATION
  Report Type: 
  Country: None (occurrence: None)
  Receive Date: 20060509
  Receipt Date: 20060421
  Transmission Date: 20061013
  Serious: Yes (Hospitalization, Other)
  Sender: FDA-Public Use
  Company Number: 223313

PATIENT
  Age: 43 Year
  Sex: Female
  Weight: 61 kg

DRUGS (2)
  1. HERCEPTIN [Suspect]
     Indication: BREAST CANCER METASTATIC
     Dosage: 6 MG/KG, Q3W, INTRAVENOUS
     Route: 042
     Dates: start: 20050112
  2. DOCETAXEL (DOCETAXEL) [Concomitant]

REACTIONS (11)
  - BLOOD CORTISOL DECREASED [None]
  - BLOOD THYROID STIMULATING HORMONE DECREASED [None]
  - COMA [None]
  - CONVULSION [None]
  - HYPONATRAEMIA [None]
  - HYPOTHALAMO-PITUITARY DISORDERS [None]
  - INAPPROPRIATE ANTIDIURETIC HORMONE SECRETION [None]
  - MALAISE [None]
  - THYROXINE FREE DECREASED [None]
  - URINE OUTPUT INCREASED [None]
  - VOMITING [None]
